FAERS Safety Report 15945306 (Version 1)
Quarter: 2019Q1

REPORT INFORMATION
  Report Type: Spontaneous
  Country: US (occurrence: US)
  Receive Date: 20190212
  Receipt Date: 20190212
  Transmission Date: 20190417
  Serious: No
  Sender: FDA-Public Use
  Company Number: None

PATIENT
  Age: 37 Year
  Sex: Male
  Weight: 81 kg

DRUGS (4)
  1. EQUATE COUGH DM [Suspect]
     Active Substance: DEXTROMETHORPHAN HYDROBROMIDE
     Indication: COUGH
     Dosage: ?          QUANTITY:10 ML;?
     Route: 048
     Dates: start: 20190203, end: 20190212
  2. CALCIUM SUPPLEMENT [Concomitant]
     Active Substance: CALCIUM
  3. VITAMIN C SUPPLEMENT [Concomitant]
     Active Substance: ASCORBIC ACID
  4. OTC MEN^S DAILY VITAMIN [Concomitant]

REACTIONS (1)
  - Diarrhoea [None]

NARRATIVE: CASE EVENT DATE: 20190212
